FAERS Safety Report 7204007-0 (Version None)
Quarter: 2010Q4

REPORT INFORMATION
  Report Type: 
  Country: None (occurrence: None)
  Receive Date: 20101230
  Receipt Date: 20101227
  Transmission Date: 20110411
  Serious: Yes (Other)
  Sender: FDA-Public Use
  Company Number: US-PFIZER INC-2010179643

PATIENT
  Sex: Female
  Weight: 63.492 kg

DRUGS (2)
  1. MEDROXYPROGESTERONE ACETATE [Suspect]
     Indication: CONTRACEPTION
     Dosage: 150 MG, EVERY 3 WEEKS
     Route: 030
     Dates: start: 20080205
  2. MEDROXYPROGESTERONE ACETATE [Suspect]
     Dosage: 150 MG, EVERY 3 WEEKS
     Route: 030
     Dates: start: 20100430

REACTIONS (2)
  - DRUG INEFFECTIVE [None]
  - UNINTENDED PREGNANCY [None]
